FAERS Safety Report 10005513 (Version 2)
Quarter: 2014Q1

REPORT INFORMATION
  Report Type: Spontaneous
  Country: BR (occurrence: BR)
  Receive Date: 20140313
  Receipt Date: 20140313
  Transmission Date: 20141002
  Serious: Yes (Other)
  Sender: FDA-Public Use
  Company Number: BR-AMGEN-BRASP2012013548

PATIENT
  Age: 55 Year
  Sex: Female
  Weight: 67 kg

DRUGS (11)
  1. ENBREL [Suspect]
     Indication: RHEUMATOID ARTHRITIS
     Dosage: 50 MG, ONCE WEEKLY
     Route: 058
     Dates: start: 20111212
  2. ENBREL [Suspect]
     Dosage: UNK
     Route: 065
     Dates: start: 20120112, end: 2012
  3. ENBREL [Suspect]
     Dosage: UNK
     Route: 065
     Dates: start: 20120125
  4. ENBREL [Suspect]
     Dosage: UNK
     Route: 065
     Dates: start: 20120215
  5. ENBREL [Suspect]
     Dosage: 50 MG, QWK
     Route: 058
     Dates: start: 201201, end: 20140211
  6. METHOTREXATE [Concomitant]
     Indication: RHEUMATOID ARTHRITIS
     Dosage: 20 MG, 2X/WEEK
     Dates: start: 2010
  7. FOLIC ACID [Concomitant]
     Indication: RHEUMATOID ARTHRITIS
     Dosage: 10 MG (TWO TABLETS OF 5MG), 2X/WEEK
     Dates: start: 2010
  8. LEFLUNOMIDE [Concomitant]
     Indication: RHEUMATOID ARTHRITIS
     Dosage: 20 MG, 1X/DAY
     Dates: start: 2010
  9. DAFLON                             /00426001/ [Concomitant]
     Indication: CARDIOVASCULAR DISORDER
     Dosage: 1000 MG, 1X/DAY
     Dates: start: 2011
  10. ATENOLOL [Concomitant]
     Indication: HEART RATE INCREASED
     Dosage: 50 MG (TWO TABLETS OF 25MG) ONCE DAILY
     Dates: start: 2011
  11. ARAVA [Concomitant]
     Dosage: UNK, (STRENGTH 20MG)

REACTIONS (7)
  - Rash macular [Unknown]
  - Pyrexia [Unknown]
  - Headache [Unknown]
  - Dengue fever [Unknown]
  - Pruritus [Unknown]
  - Weight increased [Not Recovered/Not Resolved]
  - Osteoarthritis [Unknown]
